FAERS Safety Report 6266315-X (Version None)
Quarter: 2009Q3

REPORT INFORMATION
  Report Type: 
  Country: None (occurrence: None)
  Receive Date: 20090713
  Receipt Date: 20090703
  Transmission Date: 20100115
  Serious: Yes (Hospitalization, Other)
  Sender: FDA-Public Use
  Company Number: PHHY2009CA15551

PATIENT
  Sex: Male

DRUGS (3)
  1. EXJADE [Suspect]
     Indication: IRON OVERLOAD
     Dosage: 1750 MG, DAILY
     Route: 048
     Dates: start: 20090301
  2. PREDNISONE [Concomitant]
  3. TUMS [Concomitant]

REACTIONS (11)
  - ABDOMINAL PAIN UPPER [None]
  - ASTHENIA [None]
  - BEDRIDDEN [None]
  - CHILLS [None]
  - DIZZINESS [None]
  - HEADACHE [None]
  - HYPERHIDROSIS [None]
  - MALAISE [None]
  - NAUSEA [None]
  - PARALYSIS [None]
  - PYREXIA [None]
